FAERS Safety Report 6639934-6 (Version None)
Quarter: 2010Q1

REPORT INFORMATION
  Report Type: 
  Country: None (occurrence: None)
  Receive Date: 20100318
  Receipt Date: 20070711
  Transmission Date: 20100710
  Serious: Yes (Other)
  Sender: FDA-Public Use
  Company Number: CHNY2007FR02534

PATIENT
  Age: 52 Year
  Sex: Male

DRUGS (4)
  1. ACETYLSALICYLIC ACID SRT [Suspect]
     Indication: VIRAL RHINITIS
     Dosage: 1000 MG, ONCE/SINGLE
  2. ACETYLSALICYLIC ACID SRT [Suspect]
     Dosage: 500 MG, ONCE/SINGLE
  3. ACETYLSALICYLIC ACID+ASCORBIC ACID (NGX) [Suspect]
     Indication: HEADACHE
     Dosage: 1000 MG, ONCE/SINGLE
  4. GUAR GUM [Suspect]
     Indication: WEIGHT LOSS DIET

REACTIONS (7)
  - ABDOMINAL PAIN UPPER [None]
  - ANAPHYLACTIC REACTION [None]
  - ASTHENIA [None]
  - CHEST PAIN [None]
  - CIRCULATORY COLLAPSE [None]
  - DYSPNOEA [None]
  - URTICARIA [None]
